FAERS Safety Report 5403648-0 (Version None)
Quarter: 2007Q3

REPORT INFORMATION
  Report Type: 
  Country: None (occurrence: None)
  Receive Date: 20070802
  Receipt Date: 20070730
  Transmission Date: 20080115
  Serious: Yes (Death, Hospitalization)
  Sender: FDA-Public Use
  Company Number: PHFR2007GB02147

PATIENT
  Age: 90 Year
  Sex: Female

DRUGS (7)
  1. DICLOFENAC SODIUM [Suspect]
     Dosage: 50 MG, TID
     Route: 048
     Dates: start: 20070530
  2. ASPIRIN [Concomitant]
     Indication: PERIPHERAL VASCULAR DISORDER
  3. CARBAMAZEPINE [Concomitant]
     Indication: PERIPHERAL VASCULAR DISORDER
  4. CO-AMILOFRUSE [Concomitant]
     Indication: PERIPHERAL VASCULAR DISORDER
  5. CO-PROXAMOL [Concomitant]
     Indication: PERIPHERAL VASCULAR DISORDER
  6. DIGOXIN [Concomitant]
     Indication: PERIPHERAL VASCULAR DISORDER
  7. MORPHINE SULFATE [Concomitant]
     Indication: PERIPHERAL VASCULAR DISORDER

REACTIONS (1)
  - PANCREATITIS ACUTE [None]
